FAERS Safety Report 11009529 (Version 1)
Quarter: 2015Q2

REPORT INFORMATION
  Report Type: Report from Study
  Country: US (occurrence: US)
  Receive Date: 20150410
  Receipt Date: 20150410
  Transmission Date: 20150821
  Serious: Yes (Death, Hospitalization)
  Sender: FDA-Public Use
  Company Number: US-SA-2015SA045704

PATIENT

DRUGS (5)
  1. G-CSF [Concomitant]
     Active Substance: GRANULOCYTE COLONY-STIMULATING FACTOR NOS
  2. DOCETAXEL. [Suspect]
     Active Substance: DOCETAXEL
     Indication: LUNG ADENOCARCINOMA STAGE III
     Dosage: DRUG ADMINISTERED ON DAYS 1, 22, 43, (ON DAY 1 EVERY 21 DAY CYCLE)
     Route: 065
  3. BEVACIZUMAB [Suspect]
     Active Substance: BEVACIZUMAB
     Indication: LUNG ADENOCARCINOMA STAGE III
     Dosage: DRUG ADMINISTERED ON DAYS 1, 22, 43, (ON DAY 1 EVERY 21 DAY CYCLE)
     Route: 065
  4. CISPLATIN. [Suspect]
     Active Substance: CISPLATIN
     Indication: LUNG ADENOCARCINOMA STAGE III
     Dosage: DRUG ADMINISTERED ON DAYS 1, 8, 29, AND 36, TWO 28 DAY CYCLES
     Route: 065
  5. ETOPOSIDE. [Suspect]
     Active Substance: ETOPOSIDE
     Indication: LUNG ADENOCARCINOMA STAGE III
     Dosage: DRUG ADMINISTERED ON DAYS 1 TO 5 AND 29 TO 33, TWO 28 DAY CYCLES
     Route: 065

REACTIONS (3)
  - Haemoptysis [Fatal]
  - Pulmonary haemorrhage [Fatal]
  - Pneumonia [Unknown]
